FAERS Safety Report 4782746-9 (Version None)
Quarter: 2005Q3

REPORT INFORMATION
  Report Type: 
  Country: None (occurrence: None)
  Receive Date: 20050929
  Receipt Date: 20050926
  Transmission Date: 20060218
  Serious: Yes (Hospitalization)
  Sender: FDA-Public Use
  Company Number: PHRM2005FR02555

PATIENT
  Age: 65 Year
  Sex: Male

DRUGS (5)
  1. CLONAZEPAM [Suspect]
     Dosage: 18 MG, QD
     Route: 048
     Dates: end: 20050802
  2. FORLAX [Suspect]
     Dosage: 10 G, TID
     Route: 048
     Dates: start: 20050308, end: 20050802
  3. XANAX [Concomitant]
     Route: 048
     Dates: start: 20050609, end: 20050802
  4. SKENAN [Concomitant]
     Dosage: 100 MG, BID
     Route: 048
     Dates: start: 20050308, end: 20050802
  5. LIORESAL [Suspect]
     Dosage: 10 MG, QD
     Route: 048
     Dates: start: 20050609, end: 20050802

REACTIONS (4)
  - BILIARY DILATATION [None]
  - BLOOD ALKALINE PHOSPHATASE INCREASED [None]
  - BLOOD CREATININE INCREASED [None]
  - GAMMA-GLUTAMYLTRANSFERASE INCREASED [None]
